FAERS Safety Report 5217437-3 (Version None)
Quarter: 2007Q1

REPORT INFORMATION
  Report Type: 
  Country: None (occurrence: None)
  Receive Date: 20070124
  Receipt Date: 20060330
  Transmission Date: 20070707
  Serious: Yes (Hospitalization)
  Sender: FDA-Public Use
  Company Number: US-GLAXOSMITHKLINE-A0595300A

PATIENT
  Age: 34 Year
  Sex: Female

DRUGS (3)
  1. PAXIL CR [Suspect]
     Dosage: 12.5MG PER DAY
     Route: 048
     Dates: start: 20040101, end: 20060221
  2. SYNTHROID [Concomitant]
  3. ST. JOHN'S WORT [Concomitant]
     Dates: start: 20060201

REACTIONS (16)
  - ANOREXIA [None]
  - ANXIETY [None]
  - CRYING [None]
  - DEPRESSED MOOD [None]
  - DEPRESSIVE SYMPTOM [None]
  - DIZZINESS [None]
  - DRUG WITHDRAWAL SYNDROME [None]
  - DYSPHAGIA [None]
  - FATIGUE [None]
  - FEAR [None]
  - FEELING HOT AND COLD [None]
  - HEART RATE INCREASED [None]
  - MOOD SWINGS [None]
  - PANIC DISORDER [None]
  - PARANOIA [None]
  - TREMOR [None]
